FAERS Safety Report 5592289-0 (Version None)
Quarter: 2007Q4

REPORT INFORMATION
  Report Type: 
  Country: None (occurrence: None)
  Receive Date: 20071217
  Receipt Date: 20071114
  Transmission Date: 20080405
  Serious: Yes (Other)
  Sender: FDA-Public Use
  Company Number: BDI-010485

PATIENT
  Age: 13 Year
  Sex: Female

DRUGS (2)
  1. MULTIHANCE [Suspect]
     Indication: CENTRAL PAIN SYNDROME
     Dosage: 8 ML ONCE IV
     Route: 042
     Dates: start: 20071031, end: 20071031
  2. MULTIHANCE [Suspect]
     Indication: NUCLEAR MAGNETIC RESONANCE IMAGING BRAIN
     Dosage: 8 ML ONCE IV
     Route: 042
     Dates: start: 20071031, end: 20071031

REACTIONS (1)
  - HYPERSENSITIVITY [None]
